FAERS Safety Report 4454917-2 (Version None)
Quarter: 2004Q3

REPORT INFORMATION
  Report Type: 
  Country: None (occurrence: None)
  Receive Date: 20040921
  Receipt Date: 20040915
  Transmission Date: 20050211
  Serious: Yes (Life-Threatening)
  Sender: FDA-Public Use
  Company Number: GB-GLAXOSMITHKLINE-B0345416A

PATIENT
  Age: 41 Year
  Sex: Female
  Weight: 72.8 kg

DRUGS (1)
  1. CO-AMOXICLAV [Suspect]
     Indication: PROPHYLAXIS
     Dosage: 1.2G PER DAY
     Route: 042
     Dates: start: 20040608, end: 20040608

REACTIONS (3)
  - BRONCHOSPASM [None]
  - DYSPNOEA [None]
  - FEELING HOT [None]
